FAERS Safety Report 8331813-1 (Version None)
Quarter: 2012Q2

REPORT INFORMATION
  Report Type: 
  Country: None (occurrence: None)
  Receive Date: 20120502
  Receipt Date: 20120420
  Transmission Date: 20120825
  Serious: No
  Sender: FDA-Public Use
  Company Number: US-AMGEN-USASP2012025288

PATIENT
  Age: 51 Year
  Sex: Female

DRUGS (1)
  1. ENBREL [Suspect]
     Indication: PSORIASIS
     Dosage: UNK
     Dates: start: 20120301

REACTIONS (5)
  - CYANOSIS [None]
  - COUGH [None]
  - NASOPHARYNGITIS [None]
  - PERIPHERAL VASCULAR DISORDER [None]
  - PERIPHERAL COLDNESS [None]
